FAERS Safety Report 5321603-6 (Version None)
Quarter: 2007Q2

REPORT INFORMATION
  Report Type: 
  Country: None (occurrence: None)
  Receive Date: 20070510
  Receipt Date: 20070501
  Transmission Date: 20071010
  Serious: Yes (Hospitalization)
  Sender: FDA-Public Use
  Company Number: US-ROCHE-490992

PATIENT
  Age: 83 Year
  Sex: Female

DRUGS (2)
  1. BONIVA [Suspect]
     Indication: OSTEOPOROSIS
     Route: 042
     Dates: end: 20061212
  2. BONIVA [Concomitant]
     Route: 048
     Dates: start: 20070313, end: 20070402

REACTIONS (2)
  - ATRIAL FIBRILLATION [None]
  - VEIN DISORDER [None]
